FAERS Safety Report 17939180 (Version 2)
Quarter: 2020Q4

REPORT INFORMATION
  Report Type: Report from Study
  Country: None (occurrence: US)
  Receive Date: 20200624
  Receipt Date: 20201016
  Transmission Date: 20210113
  Serious: Yes (Other)
  Sender: FDA-Public Use
  Company Number: US-ABBVIE-20K-163-3398670-00

PATIENT
  Sex: Male

DRUGS (3)
  1. HUMIRA [Suspect]
     Active Substance: ADALIMUMAB
     Indication: CROHN^S DISEASE
     Route: 058
     Dates: start: 20200311, end: 20200505
  2. HUMIRA [Suspect]
     Active Substance: ADALIMUMAB
     Indication: RHEUMATOID ARTHRITIS
     Route: 058
     Dates: start: 20200529
  3. XARELTO [Suspect]
     Active Substance: RIVAROXABAN
     Indication: PRODUCT USED FOR UNKNOWN INDICATION
     Route: 065
     Dates: start: 202007

REACTIONS (14)
  - Pulmonary thrombosis [Unknown]
  - Skin laceration [Unknown]
  - Fear [Unknown]
  - Anxiety [Unknown]
  - Localised infection [Unknown]
  - Diarrhoea [Unknown]
  - Asthenia [Unknown]
  - Abnormal faeces [Unknown]
  - Increased tendency to bruise [Unknown]
  - Fall [Unknown]
  - Haemorrhage [Unknown]
  - Constipation [Unknown]
  - Insomnia [Unknown]
  - Dyspnoea [Unknown]

NARRATIVE: CASE EVENT DATE: 2020
